FAERS Safety Report 25368655 (Version 1)
Quarter: 2025Q2

REPORT INFORMATION
  Report Type: Spontaneous
  Country: US (occurrence: US)
  Receive Date: 20250528
  Receipt Date: 20250528
  Transmission Date: 20250717
  Serious: No
  Sender: ELI LILLY AND COMPANY
  Company Number: US-ELI_LILLY_AND_COMPANY-US202505022843

PATIENT
  Age: 64 Year
  Sex: Female

DRUGS (1)
  1. TRULICITY [Suspect]
     Active Substance: DULAGLUTIDE
     Indication: Diabetes mellitus
     Route: 058
     Dates: start: 202411

REACTIONS (7)
  - Dizziness [Unknown]
  - Blood glucose abnormal [Unknown]
  - Poor quality sleep [Unknown]
  - Feeling abnormal [Unknown]
  - Food intolerance [Unknown]
  - Gastritis [Unknown]
  - Eructation [Unknown]

NARRATIVE: CASE EVENT DATE: 20250501
